FAERS Safety Report 9283707 (Version 3)
Quarter: 2013Q3

REPORT INFORMATION
  Report Type: Spontaneous
  Country: US (occurrence: US)
  Receive Date: 20130510
  Receipt Date: 20130718
  Transmission Date: 20140515
  Serious: Yes (Other)
  Sender: FDA-Public Use
  Company Number: US-GLAXOSMITHKLINE-A1023100A

PATIENT
  Age: 65 Year
  Sex: Male

DRUGS (1)
  1. VOTRIENT [Suspect]
     Indication: RENAL CANCER
     Dosage: 200MG FOUR TIMES PER DAY

REACTIONS (11)
  - Lung neoplasm [Not Recovered/Not Resolved]
  - Hair colour changes [Unknown]
  - Pigmentation disorder [Unknown]
  - Lymphatic system neoplasm [Not Recovered/Not Resolved]
  - Radiotherapy [Unknown]
  - Herpes zoster [Unknown]
  - Diarrhoea [Unknown]
  - Ageusia [Unknown]
  - Glossodynia [Unknown]
  - Oral pain [Unknown]
  - Macular degeneration [Unknown]
